FAERS Safety Report 9055600 (Version 1)
Quarter: 2013Q1

REPORT INFORMATION
  Report Type: Spontaneous
  Country: DE (occurrence: DE)
  Receive Date: 20130206
  Receipt Date: 20130206
  Transmission Date: 20140127
  Serious: Yes (Hospitalization)
  Sender: FDA-Public Use
  Company Number: DE-ELI_LILLY_AND_COMPANY-DE201301010209

PATIENT
  Age: 74 Year
  Sex: Male
  Weight: 64 kg

DRUGS (2)
  1. GEMZAR [Suspect]
     Indication: PANCREATIC CARCINOMA
     Dosage: 1800 DF, UNK
     Route: 042
     Dates: start: 20120816, end: 20120903
  2. GRANISETRON [Concomitant]
     Indication: ANTIEMETIC SUPPORTIVE CARE
     Dosage: 1 MG, UNK
     Route: 042
     Dates: start: 20120816, end: 20120903

REACTIONS (1)
  - Pancreatitis acute [Recovering/Resolving]
